APPROVED DRUG PRODUCT: TRIAPRIN
Active Ingredient: ACETAMINOPHEN; BUTALBITAL
Strength: 325MG;50MG
Dosage Form/Route: CAPSULE;ORAL
Application: A089268 | Product #001
Applicant: DUNHALL PHARMACEUTICALS INC
Approved: Jul 2, 1987 | RLD: No | RS: No | Type: DISCN